FAERS Safety Report 25236343 (Version 2)
Quarter: 2025Q4

REPORT INFORMATION
  Report Type: Spontaneous
  Country: EU (occurrence: EU)
  Receive Date: 20250424
  Receipt Date: 20251227
  Transmission Date: 20260118
  Serious: Yes (Hospitalization, Disabling, Other)
  Sender: TEVA
  Company Number: EU-SA-SAC20240523000968

PATIENT
  Age: 60 Year
  Sex: Female
  Weight: 59 kg

DRUGS (50)
  1. BROMAZEPAM [Suspect]
     Active Substance: BROMAZEPAM
     Indication: Product used for unknown indication
     Dosage: 6 MG (6 MG TABS DOUBLE-SCORED 1 TBLT/30) 1/4 TABLET MORNING, NOON AND EVENING, FOR 3 MONTHS.
     Route: 048
  2. BROMAZEPAM [Suspect]
     Active Substance: BROMAZEPAM
     Indication: Product used for unknown indication
     Dosage: 0.25 DF, TID, TIME INTERVAL: 0.33333333 DAYS: ONE QUARTER TABLET IN THE MORNING, AT TWELVE AND ONE
     Route: 048
  3. MIRTAZAPINE [Suspect]
     Active Substance: MIRTAZAPINE
     Indication: Product used for unknown indication
     Dosage: ARROW GENERIQUES 15 MG FI/30, (2 TABLETS IN THE EVENING FOR 3 MONTHS)
     Route: 048
  4. MIRTAZAPINE [Suspect]
     Active Substance: MIRTAZAPINE
     Indication: Product used for unknown indication
     Dosage: ARROW GENERIQUES 15 MG FI/30, (2 TABLETS IN THE EVENING FOR 3 MONTHS)
     Route: 048
  5. NOMEGESTROL ACETATE [Suspect]
     Active Substance: NOMEGESTROL ACETATE
     Indication: Product used for unknown indication
     Dosage: 5 MG
     Route: 065
     Dates: start: 20170918
  6. NOMEGESTROL ACETATE [Suspect]
     Active Substance: NOMEGESTROL ACETATE
     Indication: Product used for unknown indication
     Dosage: 5 MG
     Route: 065
     Dates: start: 20100621
  7. CHOLECALCIFEROL [Concomitant]
     Active Substance: CHOLECALCIFEROL
     Indication: Product used for unknown indication
     Dosage: PRESCRIBED AT A RATE OF 1 VIAL/MONTH
     Route: 065
  8. LYRICA [Suspect]
     Active Substance: PREGABALIN
     Indication: Product used for unknown indication
     Dosage: 1 DF, BID
     Route: 048
  9. TRAMADOL HYDROCHLORIDE [Suspect]
     Active Substance: TRAMADOL HYDROCHLORIDE
     Indication: Complex regional pain syndrome
     Dosage: 1 DF, QD
     Route: 048
  10. DAFALGAN [Suspect]
     Active Substance: ACETAMINOPHEN
     Indication: Product used for unknown indication
     Dosage: 4 DF, QD
     Route: 048
  11. CHLORMADINONE ACETATE [Suspect]
     Active Substance: CHLORMADINONE ACETATE
     Indication: Menstruation irregular
     Dosage: 1 DF , QD FOR 21 DAYS
     Route: 065
     Dates: start: 20190715
  12. CHLORMADINONE ACETATE [Suspect]
     Active Substance: CHLORMADINONE ACETATE
     Indication: Menstruation irregular
     Dosage: 1 DF , QD FOR 21 DAYS/ONE TABLET PER DAY DURING 21 DAYS AND 7 DAYS OFF BY MONTHS
     Route: 065
     Dates: start: 20100317, end: 20100621
  13. CHLORMADINONE ACETATE [Suspect]
     Active Substance: CHLORMADINONE ACETATE
     Indication: Menstruation irregular
     Dosage: 1 DF , QD FOR 21 DAYS
     Route: 065
     Dates: start: 20190117
  14. CHLORMADINONE ACETATE [Suspect]
     Active Substance: CHLORMADINONE ACETATE
     Indication: Menstruation irregular
     Dosage: 1 DF , QD FOR 21 DAYS/MERCK , ONE TABLET PER DAY DURING 21 DAYS AND 7 DAYS OFF BY MONTHS
     Route: 065
     Dates: start: 20190806
  15. CHLORMADINONE ACETATE [Suspect]
     Active Substance: CHLORMADINONE ACETATE
     Indication: Menstruation irregular
     Dosage: ONE TABLET PER DAY DURING 21 DAYS AND 7 DAYS OFF BY MONTHS
     Route: 065
     Dates: start: 20191028
  16. CHLORMADINONE ACETATE [Suspect]
     Active Substance: CHLORMADINONE ACETATE
     Indication: Menstruation irregular
     Dosage: ONE TABLET PER DAY DURING 21 DAYS AND 7 DAYS OFF BY MONTHS
     Route: 065
     Dates: start: 20140505
  17. CHLORMADINONE ACETATE [Suspect]
     Active Substance: CHLORMADINONE ACETATE
     Indication: Menstruation irregular
     Route: 065
     Dates: start: 20170918
  18. IBUPROFEN [Suspect]
     Active Substance: IBUPROFEN
     Indication: Product used for unknown indication
     Dosage: MAKE 3 APPLICATIONS PER DAY
     Route: 003
  19. IBUPROFEN [Suspect]
     Active Substance: IBUPROFEN
     Indication: Product used for unknown indication
     Dosage: 5 %, TID (IBUFETUM 5% GEL T/60G) (APPLY 3 TIMES A DAY, FOR 1 MONTH)
     Route: 003
  20. BROMAZEPAM [Concomitant]
     Active Substance: BROMAZEPAM
     Indication: Product used for unknown indication
     Route: 065
  21. CETIRIZINE [Suspect]
     Active Substance: CETIRIZINE HYDROCHLORIDE
     Indication: Product used for unknown indication
     Dosage: 1 DF, QD/ONCE IN THE EVENING
     Route: 065
  22. LOCOID [Suspect]
     Active Substance: HYDROCORTISONE BUTYRATE
     Indication: Product used for unknown indication
     Dosage: 0.1 % CREAM (LOCOID CF THICK T/30G)
     Route: 065
  23. PREGABALIN [Suspect]
     Active Substance: PREGABALIN
     Indication: Product used for unknown indication
     Dosage: PREGABALIN MYLAN 100 MG GEL PLQ/84
     Route: 048
  24. CETIRIZINE HYDROCHLORIDE [Suspect]
     Active Substance: CETIRIZINE HYDROCHLORIDE
     Indication: Product used for unknown indication
     Dosage: 10 MG: CETIRIZINE DIHYDROCHLORIDE
     Route: 065
  25. CHLORMADINONE [Suspect]
     Active Substance: CHLORMADINONE
     Indication: Ovarian cyst
     Dosage: MERCK, ONE TABLET PER DAY DURING 21 DAYS AND 7 DAYS OFF BY MOTHS
     Route: 065
     Dates: start: 2010
  26. SMECTA [Suspect]
     Active Substance: MONTMORILLONITE
     Indication: Product used for unknown indication
     Dosage: DIOSMECTITE 3 G PDRE P SUSP BUV SACH (SMECTA 3 G POWDER FOR ORAL SUSP, IN ORANGE VANILLA SACHET) ...
     Route: 065
  27. METEOSPASMYL (ALVERINE CITRATE\DIMETHICONE) [Suspect]
     Active Substance: ALVERINE CITRATE\DIMETHICONE
     Indication: Product used for unknown indication
     Dosage: B/20
     Route: 065
  28. METEOSPASMYL (ALVERINE CITRATE\DIMETHICONE) [Suspect]
     Active Substance: ALVERINE CITRATE\DIMETHICONE
     Indication: Product used for unknown indication
     Dosage: 300 MG 3 CAPSULES A DAY FOR 10 DAYS
     Route: 065
  29. PROGESTERONE [Suspect]
     Active Substance: PROGESTERONE
     Indication: Product used for unknown indication
     Dosage: 1 DOSE OF GEL PER DAY ON THE BREASTS RP 6 MONTHS
     Route: 065
     Dates: start: 20100317
  30. DARIDOREXANT [Concomitant]
     Active Substance: DARIDOREXANT
     Indication: Product used for unknown indication
     Dosage: 1 TABLET AT BEDTIME
     Route: 065
  31. PREGABALIN [Suspect]
     Active Substance: PREGABALIN
     Indication: Product used for unknown indication
     Dosage: 1 DF, BID
     Route: 048
  32. CYAMEMAZINE [Concomitant]
     Active Substance: CYAMEMAZINE
     Indication: Product used for unknown indication
     Route: 065
  33. NOMEGESTROL ACETATE [Suspect]
     Active Substance: NOMEGESTROL ACETATE
     Indication: Ovarian cyst
     Dosage: 1 DF, QD
     Route: 065
     Dates: start: 20170307
  34. NOMEGESTROL ACETATE [Suspect]
     Active Substance: NOMEGESTROL ACETATE
     Indication: Ovarian cyst
     Dosage: 1 DF, QD
     Route: 065
     Dates: start: 20170921
  35. NOMEGESTROL ACETATE [Suspect]
     Active Substance: NOMEGESTROL ACETATE
     Indication: Ovarian cyst
     Dosage: 1 DF, QD
     Route: 065
     Dates: start: 20181106, end: 20190117
  36. NOMEGESTROL ACETATE [Suspect]
     Active Substance: NOMEGESTROL ACETATE
     Indication: Ovarian cyst
     Dosage: 1 DF, QD
     Route: 065
     Dates: start: 20100621
  37. NOMEGESTROL ACETATE [Suspect]
     Active Substance: NOMEGESTROL ACETATE
     Indication: Ovarian cyst
     Dosage: 1 DF, QD
     Route: 065
     Dates: start: 20150403
  38. NOMEGESTROL ACETATE [Suspect]
     Active Substance: NOMEGESTROL ACETATE
     Indication: Ovarian cyst
     Dosage: 1 DF, QD
     Route: 048
     Dates: start: 20171211
  39. NOMEGESTROL ACETATE [Suspect]
     Active Substance: NOMEGESTROL ACETATE
     Indication: Ovarian cyst
     Dosage: 1 DF, QD
     Route: 065
     Dates: start: 20170613
  40. NOMEGESTROL ACETATE [Suspect]
     Active Substance: NOMEGESTROL ACETATE
     Indication: Ovarian cyst
     Dosage: 1 DF, QD
     Route: 065
     Dates: start: 20130517
  41. NOMEGESTROL ACETATE [Suspect]
     Active Substance: NOMEGESTROL ACETATE
     Indication: Ovarian cyst
     Dosage: 1 DF, QD
     Route: 065
     Dates: start: 20140505
  42. NOMEGESTROL ACETATE [Suspect]
     Active Substance: NOMEGESTROL ACETATE
     Indication: Ovarian cyst
     Dosage: 1 DF, QD
     Route: 065
     Dates: start: 20180329
  43. NOMEGESTROL ACETATE [Suspect]
     Active Substance: NOMEGESTROL ACETATE
     Indication: Ovarian cyst
     Dosage: 1 DF, QD
     Route: 065
     Dates: start: 20120514
  44. CHLORMADINONE ACETATE [Suspect]
     Active Substance: CHLORMADINONE ACETATE
     Indication: Haemorrhage
     Dosage: UNK
     Route: 065
     Dates: end: 202109
  45. CHLORMADINONE ACETATE [Suspect]
     Active Substance: CHLORMADINONE ACETATE
     Indication: Haemorrhage
     Dosage: UNK
     Route: 065
     Dates: start: 201811, end: 2019
  46. BROMAZEPAM [Concomitant]
     Active Substance: BROMAZEPAM
     Indication: Product used for unknown indication
     Dosage: 1/4 TABLET TWICE PER DAY AND AN ADDITIONAL QUARTER IF NECESSARY
     Route: 065
  47. TIAPRIDE HYDROCHLORIDE [Suspect]
     Active Substance: TIAPRIDE HYDROCHLORIDE
     Indication: Product used for unknown indication
     Dosage: 100 MG (100 SCORED TABLET PLQ/20) 1 TABLET THE EVENING FOR 3 MONTHS
     Route: 048
  48. TIAPRIDE HYDROCHLORIDE [Suspect]
     Active Substance: TIAPRIDE HYDROCHLORIDE
     Indication: Product used for unknown indication
     Dosage: 150 MG, QD (150 MG CAPSULE LP ONCE-DAILY 5) TAKE 1 CAPSULE IN THE EVENING FOR 3 MONTHS)
     Route: 048
  49. ACETAMINOPHEN [Suspect]
     Active Substance: ACETAMINOPHEN
     Indication: Product used for unknown indication
     Dosage: 1 G
     Route: 065
  50. GLYCERIN\MINERAL OIL\PETROLATUM [Suspect]
     Active Substance: GLYCERIN\MINERAL OIL\PETROLATUM
     Indication: Product used for unknown indication
     Dosage: GLYCEROL 15% + LIQUID PARAFFIN 2% + VASELINE 8% CREAM (DEXERYL CR T/250 ML)
     Route: 003

REACTIONS (58)
  - Mental disability [Unknown]
  - Epistaxis [Not Recovered/Not Resolved]
  - Headache [Not Recovered/Not Resolved]
  - Asthenia [Recovering/Resolving]
  - Meningioma [Recovered/Resolved with Sequelae]
  - Dizziness [Not Recovered/Not Resolved]
  - Pain in extremity [Not Recovered/Not Resolved]
  - Muscular weakness [Not Recovered/Not Resolved]
  - Pain in extremity [Unknown]
  - Vaginal discharge [Unknown]
  - Sleep disorder [Unknown]
  - Pain [Unknown]
  - Meningioma [Unknown]
  - Irritability [Unknown]
  - Scar [Not Recovered/Not Resolved]
  - Mood swings [Unknown]
  - Agoraphobia [Unknown]
  - Glucose tolerance impaired [Unknown]
  - Limb discomfort [Unknown]
  - Endometrial thickening [Unknown]
  - Decreased appetite [Unknown]
  - Electric shock sensation [Unknown]
  - Pain in extremity [Not Recovered/Not Resolved]
  - Menometrorrhagia [Unknown]
  - Aphasia [Unknown]
  - Syncope [Unknown]
  - Malaise [Unknown]
  - Avoidant personality disorder [Unknown]
  - White matter lesion [Unknown]
  - Insomnia [Unknown]
  - Disturbance in attention [Unknown]
  - Amnesia [Unknown]
  - Uterine polyp [Unknown]
  - Neuralgia [Not Recovered/Not Resolved]
  - Brain compression [Unknown]
  - Limb discomfort [Unknown]
  - Anticipatory anxiety [Unknown]
  - Weight increased [Unknown]
  - Bradyphrenia [Unknown]
  - Procedural pain [Unknown]
  - Gait disturbance [Unknown]
  - Hemiparesis [Unknown]
  - Hypercholesterolaemia [Unknown]
  - Hypoaesthesia [Unknown]
  - Intermenstrual bleeding [Unknown]
  - Panic attack [Unknown]
  - Hypoaesthesia [Unknown]
  - Sensory loss [Unknown]
  - Meningioma [Recovered/Resolved]
  - Learning disorder [Unknown]
  - Claustrophobia [Unknown]
  - Attention deficit hyperactivity disorder [Unknown]
  - Discomfort [Unknown]
  - Condition aggravated [Unknown]
  - Fibroma [Unknown]
  - Eating disorder [Unknown]
  - Memory impairment [Unknown]
  - Fibromyalgia [Unknown]

NARRATIVE: CASE EVENT DATE: 20150101
